FAERS Safety Report 21259120 (Version 1)
Quarter: 2022Q3

REPORT INFORMATION
  Report Type: Spontaneous
  Country: US (occurrence: US)
  Receive Date: 20220826
  Receipt Date: 20220826
  Transmission Date: 20221027
  Serious: No
  Sender: FDA-Public Use
  Company Number: US-VIIV HEALTHCARE LIMITED-US2022AMR120652

PATIENT

DRUGS (2)
  1. RUKOBIA [Suspect]
     Active Substance: FOSTEMSAVIR TROMETHAMINE
     Indication: Viral load abnormal
     Dosage: UNK
  2. TROGARZO [Suspect]
     Active Substance: IBALIZUMAB-UIYK
     Indication: Viral load abnormal
     Dosage: UNK

REACTIONS (1)
  - Drug ineffective [Unknown]
